FAERS Safety Report 25539973 (Version 1)
Quarter: 2025Q3

REPORT INFORMATION
  Report Type: Report from Study
  Country: EU (occurrence: EU)
  Receive Date: 20250710
  Receipt Date: 20250710
  Transmission Date: 20251020
  Serious: Yes (Hospitalization)
  Sender: PFIZER
  Company Number: EU-ASTRAZENECA-202501GLO020120IT

PATIENT
  Age: 32 Year
  Sex: Female

DRUGS (17)
  1. CARBOPLATIN [Suspect]
     Active Substance: CARBOPLATIN
     Indication: Triple negative breast cancer
     Dosage: 1.5 AUC, QW
     Route: 042
     Dates: start: 20241016, end: 20250108
  2. CARBOPLATIN [Suspect]
     Active Substance: CARBOPLATIN
     Route: 042
     Dates: start: 20250115, end: 20250115
  3. PACLITAXEL [Suspect]
     Active Substance: PACLITAXEL
     Indication: Triple negative breast cancer
     Dosage: 80 MG/M2, ONCE EVERY 1 WK
     Route: 042
     Dates: start: 20241016, end: 20250115
  4. PEMBROLIZUMAB [Suspect]
     Active Substance: PEMBROLIZUMAB
     Indication: Triple negative breast cancer
     Dosage: 200 MG, ONCE EVERY 3 WK
     Route: 042
     Dates: start: 20241016, end: 20241204
  5. HYALURONIC ACID [Concomitant]
     Active Substance: HYALURONIC ACID
     Indication: Neuropathy peripheral
     Route: 061
     Dates: start: 20241224, end: 20250112
  6. GRANISETRON HYDROCHLORIDE [Concomitant]
     Active Substance: GRANISETRON HYDROCHLORIDE
     Indication: Premedication
     Route: 023
     Dates: start: 20241015
  7. GRANISETRON HYDROCHLORIDE [Concomitant]
     Active Substance: GRANISETRON HYDROCHLORIDE
     Route: 042
     Dates: start: 20241016
  8. CORTIFLUORAL [Concomitant]
     Indication: Premedication
     Dates: start: 20241104
  9. MYCOSTATIN [Concomitant]
     Active Substance: NYSTATIN
     Indication: Mouth ulceration
     Dates: start: 20241218
  10. TRIPTORELIN [Concomitant]
     Active Substance: TRIPTORELIN
     Indication: Breast cancer
     Route: 058
     Dates: start: 20241010
  11. CISTIFLUX [Concomitant]
     Indication: Dysuria
     Route: 048
     Dates: start: 20241214, end: 20250112
  12. LENINERV [Concomitant]
     Indication: Neuropathy peripheral
     Route: 048
     Dates: start: 20241212, end: 20250112
  13. PREDNISONE [Concomitant]
     Active Substance: PREDNISONE
     Indication: Premedication
     Route: 048
     Dates: start: 20241015
  14. OMEPRAZOLE [Concomitant]
     Active Substance: OMEPRAZOLE
     Indication: Premedication
     Route: 048
     Dates: start: 20241015
  15. CHLORPHENIRAMINE MALEATE [Concomitant]
     Active Substance: CHLORPHENIRAMINE MALEATE
     Indication: Premedication
     Route: 042
     Dates: start: 20241016
  16. DEXAMETHASONE [Concomitant]
     Active Substance: DEXAMETHASONE
     Indication: Premedication
     Route: 042
     Dates: start: 20241016
  17. FOSTER [Concomitant]
     Active Substance: BECLOMETHASONE\FORMOTEROL
     Indication: Asthma
     Route: 055
     Dates: start: 2018

REACTIONS (1)
  - Acute kidney injury [Recovered/Resolved]

NARRATIVE: CASE EVENT DATE: 20250122
